FAERS Safety Report 6971714-4 (Version None)
Quarter: 2010Q3

REPORT INFORMATION
  Report Type: 
  Country: None (occurrence: None)
  Receive Date: 20100908
  Receipt Date: 20100902
  Transmission Date: 20110219
  Serious: Yes (Life-Threatening, Hospitalization)
  Sender: FDA-Public Use
  Company Number: JP-ELI_LILLY_AND_COMPANY-JP201009000435

PATIENT
  Age: 67 Year
  Sex: Male
  Weight: 71 kg

DRUGS (17)
  1. PEMETREXED [Suspect]
     Indication: LUNG ADENOCARCINOMA STAGE IV
     Dosage: 500 MG/M2, OTHER
     Route: 042
     Dates: start: 20091225, end: 20091225
  2. PEMETREXED [Suspect]
     Dosage: 500 MG/M2, OTHER
     Route: 042
     Dates: start: 20100115, end: 20100115
  3. CARBOPLATIN [Concomitant]
     Indication: LUNG ADENOCARCINOMA STAGE IV
     Dosage: 625 MG, OTHER
     Route: 042
     Dates: start: 20091225, end: 20091225
  4. CARBOPLATIN [Concomitant]
     Dosage: 625 MG, OTHER
     Route: 042
     Dates: start: 20100115, end: 20100115
  5. PANVITAN [Concomitant]
     Indication: PROPHYLAXIS
     Dosage: 1 G, DAILY (1/D)
     Route: 048
     Dates: start: 20091222
  6. METHYCOBAL [Concomitant]
     Indication: PROPHYLAXIS
     Dosage: 1 MG, OTHER
     Route: 030
     Dates: start: 20091222, end: 20091222
  7. DECADRON [Concomitant]
     Indication: PROPHYLAXIS
     Route: 042
     Dates: start: 20091225, end: 20091225
  8. DECADRON [Concomitant]
     Route: 042
     Dates: start: 20100115, end: 20100115
  9. GRANISETRON HCL [Concomitant]
     Indication: PROPHYLAXIS
     Route: 042
     Dates: start: 20091225, end: 20091225
  10. GRANISETRON HCL [Concomitant]
     Route: 042
     Dates: start: 20100115, end: 20100115
  11. NAIXAN [Concomitant]
     Indication: CANCER PAIN
     Dosage: UNK, UNK, RECEIVED BEFORE THE STARTING OF PEMETREXED
     Route: 048
     Dates: end: 20091227
  12. MEVALOTIN [Concomitant]
     Indication: HYPERLIPIDAEMIA
     Dosage: UNK, UNK, RECEIVED BEFORE THE STARTING OF PEMETREXED
     Route: 048
     Dates: end: 20100228
  13. MICARDIS [Concomitant]
     Indication: HYPERTENSION
     Dosage: UNK, UNK, RECEIVED BEFORE THE STARTING OF PEMETREXED
     Route: 048
     Dates: end: 20091227
  14. ASPIRIN [Concomitant]
     Indication: MYOCARDIAL INFARCTION
     Dosage: UNK, UNK, RECEIVED BEFORE THE STARTING OF PEMETREXED
     Route: 048
  15. PREDNISOLONE [Concomitant]
     Indication: DERMATOMYOSITIS
     Dosage: UNK, UNK, RECEIVED BEFORE THE STARTING OF PEMETREXED
  16. BONALON [Concomitant]
     Indication: PROPHYLAXIS
     Route: 048
     Dates: start: 20100106, end: 20100224
  17. TAKEPRON [Concomitant]
     Indication: PROPHYLAXIS
     Route: 048
     Dates: start: 20100106

REACTIONS (3)
  - DISEASE PROGRESSION [None]
  - DIVERTICULUM INTESTINAL HAEMORRHAGIC [None]
  - HEPATIC ENCEPHALOPATHY [None]
